FAERS Safety Report 22238120 (Version 3)
Quarter: 2023Q4

REPORT INFORMATION
  Report Type: Other
  Country: CA (occurrence: None)
  Receive Date: 20230421
  Receipt Date: 20231211
  Transmission Date: 20240110
  Serious: Yes (Other)
  Sender: FDA-Public Use
  Company Number: CA-ROCHE-3283615

PATIENT
  Age: 33 Year
  Sex: Female

DRUGS (5)
  1. OCREVUS [Suspect]
     Active Substance: OCRELIZUMAB
     Indication: Relapsing-remitting multiple sclerosis
     Dosage: MORE DOSAGE INFORMATION IS 300 MG AT DAY 0 AND 14, THEN 600 MG EVERY 6 MONTH
     Route: 042
     Dates: start: 20200615
  2. AMOXICILLIN [Concomitant]
     Active Substance: AMOXICILLIN
  3. PAXLOVID [Concomitant]
     Active Substance: NIRMATRELVIR\RITONAVIR
  4. CAMBIA [Concomitant]
     Active Substance: DICLOFENAC POTASSIUM
  5. SYMBICORT [Concomitant]
     Active Substance: BUDESONIDE\FORMOTEROL FUMARATE DIHYDRATE
     Indication: Ocular hyperaemia
     Dosage: 200MCG/6MCG

REACTIONS (13)
  - Optic neuritis [Not Recovered/Not Resolved]
  - Sinusitis [Not Recovered/Not Resolved]
  - Ocular hyperaemia [Not Recovered/Not Resolved]
  - Migraine [Unknown]
  - Ocular toxicity [Not Recovered/Not Resolved]
  - COVID-19 [Recovered/Resolved]
  - Hand-foot-and-mouth disease [Recovered/Resolved]
  - Vision blurred [Recovered/Resolved]
  - Pharyngitis streptococcal [Recovered/Resolved]
  - Limb discomfort [Unknown]
  - Arthritis [Unknown]
  - Eye infection [Unknown]
  - Chronic obstructive pulmonary disease [Unknown]

NARRATIVE: CASE EVENT DATE: 20201218
